FAERS Safety Report 6296918-8 (Version None)
Quarter: 2009Q3

REPORT INFORMATION
  Report Type: 
  Country: None (occurrence: None)
  Receive Date: 20090728
  Receipt Date: 20090720
  Transmission Date: 20100115
  Serious: Yes (Hospitalization, Other)
  Sender: FDA-Public Use
  Company Number: THYM-1001097

PATIENT
  Age: 33 Year
  Sex: Male
  Weight: 79 kg

DRUGS (16)
  1. THYMOGLOBULIN [Suspect]
     Indication: STEM CELL TRANSPLANT
     Dosage: 40 MG, ONCE, INTRAVENOUS
     Route: 042
     Dates: start: 20090615, end: 20090615
  2. CYCLOPHOSPHAMIDE [Concomitant]
  3. MESNA [Concomitant]
  4. TOTAL BODY IRRADIATION [Concomitant]
  5. CYCLOSPORINE [Concomitant]
  6. ACYCLOVIR [Concomitant]
  7. VANCOMYCIN [Concomitant]
  8. MEROPENEM (MEROPENEM) [Concomitant]
  9. FOSAPREPITANT [Concomitant]
  10. MORPHINE [Concomitant]
  11. METOCLOPRAMIDE [Concomitant]
  12. TRANEXAMIC ACID (TRANEXAMIC ACID) [Concomitant]
  13. GENTAMYCIN-MP (GENTAMICIN SULFATE) [Concomitant]
  14. COLOLYT (MACROGOL 4000, POTASSIUM CHLORIDE) [Concomitant]
  15. VITAMIN K (MENADIONE) [Concomitant]
  16. ACYCLOVIR [Concomitant]

REACTIONS (7)
  - BLOOD CULTURE POSITIVE [None]
  - CHILLS [None]
  - INFUSION RELATED REACTION [None]
  - PYREXIA [None]
  - RECTAL HAEMORRHAGE [None]
  - STAPHYLOCOCCAL BACTERAEMIA [None]
  - TACHYCARDIA [None]
